FAERS Safety Report 9012030 (Version 2)
Quarter: 2013Q4

REPORT INFORMATION
  Report Type: Spontaneous
  Country: US (occurrence: US)
  Receive Date: 20130114
  Receipt Date: 20131023
  Transmission Date: 20140711
  Serious: Yes (Hospitalization)
  Sender: FDA-Public Use
  Company Number: US-BAYER-2013-003882

PATIENT
  Age: 39 Year
  Sex: Female
  Weight: 92.06 kg

DRUGS (5)
  1. YASMIN [Suspect]
     Indication: CONTRACEPTION
  2. YAZ [Suspect]
  3. OCELLA [Suspect]
  4. ZARAH [Suspect]
     Dosage: UNK
     Dates: start: 20110506, end: 20110531
  5. CHANTIX [Concomitant]

REACTIONS (2)
  - Deep vein thrombosis [None]
  - Pulmonary embolism [None]
